FAERS Safety Report 12394339 (Version 1)
Quarter: 2016Q2

REPORT INFORMATION
  Report Type: Report from Study
  Country: SE (occurrence: SE)
  Receive Date: 20160523
  Receipt Date: 20160523
  Transmission Date: 20160815
  Serious: Yes (Other)
  Sender: FDA-Public Use
  Company Number: SE-GILEAD-2016-0214865

PATIENT
  Age: 51 Year
  Sex: Male

DRUGS (5)
  1. SOFOSBUVIR [Suspect]
     Active Substance: SOFOSBUVIR
     Indication: HEPATITIS C
     Dosage: 400 MG, QD
     Route: 065
     Dates: start: 20160418
  2. PROPRANOLOL [Concomitant]
     Active Substance: PROPRANOLOL\PROPRANOLOL HYDROCHLORIDE
     Dosage: 40 MG, QD
  3. EMGESAN [Concomitant]
     Dosage: 250 MG, QD
  4. MODERIBA [Concomitant]
     Active Substance: RIBAVIRIN
     Dosage: 600 MG, BID
  5. DAKLINZA [Concomitant]
     Active Substance: DACLATASVIR
     Dosage: 60 MG, QD

REACTIONS (4)
  - Fatigue [Recovered/Resolved]
  - Depression [Recovered/Resolved]
  - Presyncope [Recovered/Resolved]
  - Balance disorder [Recovered/Resolved]

NARRATIVE: CASE EVENT DATE: 20160422
